FAERS Safety Report 5892214-9 (Version None)
Quarter: 2008Q3

REPORT INFORMATION
  Report Type: 
  Country: None (occurrence: None)
  Receive Date: 20080919
  Receipt Date: 20080911
  Transmission Date: 20090109
  Serious: Yes (Hospitalization)
  Sender: FDA-Public Use
  Company Number: CHPA2008US15374

PATIENT
  Age: 61 Year
  Sex: Male
  Weight: 81.6 kg

DRUGS (1)
  1. NO DOZ (NCH) (CAFFEINE) CAPLET [Suspect]
     Indication: SOMNOLENCE
     Dosage: 200 TO 400MG, ORAL
     Route: 048

REACTIONS (1)
  - ANXIETY [None]
